FAERS Safety Report 5675446-4 (Version None)
Quarter: 2008Q2

REPORT INFORMATION
  Report Type: 
  Country: None (occurrence: None)
  Receive Date: 20080311
  Receipt Date: 20070404
  Transmission Date: 20081010
  Serious: Yes (Hospitalization)
  Sender: FDA-Public Use
  Company Number: PHEH2007US04102

PATIENT
  Age: 7 Year
  Sex: Female

DRUGS (2)
  1. TRILEPTAL [Suspect]
     Indication: CONVULSION
     Dosage: 225 MG, BID, ORAL
     Route: 048
     Dates: start: 20070322
  2. VITAMIN B6 [Concomitant]

REACTIONS (2)
  - RASH GENERALISED [None]
  - RASH PRURITIC [None]
